FAERS Safety Report 8376811-7 (Version None)
Quarter: 2012Q2

REPORT INFORMATION
  Report Type: 
  Country: None (occurrence: None)
  Receive Date: 20120522
  Receipt Date: 20120509
  Transmission Date: 20120825
  Serious: Yes (Hospitalization)
  Sender: FDA-Public Use
  Company Number: US-ENDO PHARMACEUTICALS INC.-VALS20120027

PATIENT
  Age: 83 Year
  Sex: Female

DRUGS (1)
  1. VALSTAR PRESERVATIVE FREE [Suspect]
     Indication: PRODUCT USED FOR UNKNOWN INDICATION
     Route: 043
     Dates: start: 20120101

REACTIONS (2)
  - COLITIS ULCERATIVE [None]
  - COLITIS ISCHAEMIC [None]
